FAERS Safety Report 4569603-8 (Version None)
Quarter: 2005Q1

REPORT INFORMATION
  Report Type: 
  Country: None (occurrence: None)
  Receive Date: 20050201
  Receipt Date: 20050119
  Transmission Date: 20050727
  Serious: Yes (Hospitalization, Other)
  Sender: FDA-Public Use
  Company Number: HQWYE031016DEC04

PATIENT
  Age: 59 Year
  Sex: Female

DRUGS (8)
  1. EFFEXOR XR [Suspect]
     Indication: DEPRESSION
     Dosage: 75 MG 1X PER 1 DAY, ORAL; SEE IMAGE
     Route: 048
     Dates: start: 20040727, end: 20041118
  2. EFFEXOR XR [Suspect]
     Indication: DEPRESSION
     Dosage: 75 MG 1X PER 1 DAY, ORAL; SEE IMAGE
     Route: 048
     Dates: start: 20041119, end: 20041205
  3. EFFEXOR XR [Suspect]
     Indication: DEPRESSION
     Dosage: 75 MG 1X PER 1 DAY, ORAL; SEE IMAGE
     Route: 048
     Dates: start: 20041206, end: 20041215
  4. HALCION [Concomitant]
  5. FLURAZEPAM [Concomitant]
  6. CLONAZEPAM [Concomitant]
  7. GLUCOBAY [Concomitant]
  8. TRANDATE [Concomitant]

REACTIONS (2)
  - DISEASE RECURRENCE [None]
  - MAJOR DEPRESSION [None]
